FAERS Safety Report 4766719-8 (Version None)
Quarter: 2005Q3

REPORT INFORMATION
  Report Type: 
  Country: None (occurrence: None)
  Receive Date: 20050912
  Receipt Date: 20050829
  Transmission Date: 20060218
  Serious: Yes (Other)
  Sender: FDA-Public Use
  Company Number: 2005121894

PATIENT
  Sex: Female
  Weight: 119.296 kg

DRUGS (8)
  1. GLUCOTROL XL [Suspect]
     Indication: DIABETES MELLITUS
     Dosage: 20 MG (10 MG, 2 IN 1 D), ORAL
     Route: 048
  2. ACTOS [Concomitant]
  3. LASIX [Concomitant]
  4. AVAPRO [Concomitant]
  5. CARDENE [Concomitant]
  6. PREMARIN [Concomitant]
  7. THYROID TAB [Concomitant]
  8. ASPIRIN [Concomitant]

REACTIONS (6)
  - CONDITION AGGRAVATED [None]
  - DIABETES MELLITUS [None]
  - EMOTIONAL DISTRESS [None]
  - IATROGENIC INJURY [None]
  - PHARMACEUTICAL PRODUCT COMPLAINT [None]
  - RENAL DISORDER [None]
